FAERS Safety Report 20641946 (Version 1)
Quarter: 2022Q1

REPORT INFORMATION
  Report Type: Report from Study
  Country: US (occurrence: US)
  Receive Date: 20220328
  Receipt Date: 20220328
  Transmission Date: 20220423
  Serious: Yes (Other)
  Sender: FDA-Public Use
  Company Number: US-KYOWAKIRIN-2022BKK004019

PATIENT

DRUGS (1)
  1. CRYSVITA [Suspect]
     Active Substance: BUROSUMAB-TWZA
     Indication: Hereditary hypophosphataemic rickets
     Dosage: 90 MG, EVERY 4 WEEKS
     Route: 065
     Dates: start: 20190821

REACTIONS (3)
  - Drug withdrawal convulsions [Unknown]
  - Withdrawal syndrome [Unknown]
  - Muscle spasms [Unknown]
